FAERS Safety Report 20774306 (Version 2)
Quarter: 2022Q2

REPORT INFORMATION
  Report Type: Spontaneous
  Country: GB (occurrence: GB)
  Receive Date: 20220502
  Receipt Date: 20220526
  Transmission Date: 20220721
  Serious: Yes (Hospitalization)
  Sender: FDA-Public Use
  Company Number: GB-TEVA-2022-GB-2033066

PATIENT
  Age: 29 Year
  Sex: Male

DRUGS (6)
  1. DEXAMETHASONE [Suspect]
     Active Substance: DEXAMETHASONE
     Indication: COVID-19
     Dosage: HIGH DOSE; WITH REMDESIVIR THERAPY; 10 DAYS COURSE; OFF LABEL USE; ACTION TAKEN: THERAPY COMPLETED
     Route: 065
  2. DEXAMETHASONE [Suspect]
     Active Substance: DEXAMETHASONE
     Indication: COVID-19
     Dosage: 5 DAYS COURSE; OFF LABEL USE; ACTION TAKEN: THERAPY COMPLETED
     Route: 065
  3. REMDESIVIR [Suspect]
     Active Substance: REMDESIVIR
     Indication: COVID-19
     Dosage: WITH DEXAMETHASONE THERAPY
     Route: 065
  4. REMDESIVIR [Suspect]
     Active Substance: REMDESIVIR
     Indication: COVID-19
     Dosage: WITH CASIRIVIMAB/IMDEVIMAB THERAPY
     Route: 065
  5. ANAKINRA [Suspect]
     Active Substance: ANAKINRA
     Indication: COVID-19
     Dosage: OFF LABEL USE
     Route: 065
  6. REGEN-COV [Concomitant]
     Active Substance: CASIRIVIMAB\IMDEVIMAB
     Indication: COVID-19
     Dosage: WITH REMDESIVIR THERAPY; CASIRIVIMAB: 1200 MG; IMDEVIMAB: 1200 MG; OFF LABEL USE
     Route: 065

REACTIONS (3)
  - Liver function test abnormal [Recovered/Resolved]
  - Off label use [Unknown]
  - Pneumocystis jirovecii pneumonia [Recovered/Resolved]
